FAERS Safety Report 6177094-9 (Version None)
Quarter: 2009Q2

REPORT INFORMATION
  Report Type: 
  Country: None (occurrence: None)
  Receive Date: 20090504
  Receipt Date: 20090427
  Transmission Date: 20091009
  Serious: Yes (Other)
  Sender: FDA-Public Use
  Company Number: US-ASTRAZENECA-2007UW12894

PATIENT
  Age: 343 Month
  Sex: Female
  Weight: 155.6 kg

DRUGS (7)
  1. SEROQUEL [Suspect]
     Indication: SLEEP DISORDER
     Route: 048
     Dates: start: 20011001
  2. SEROQUEL [Suspect]
     Indication: BIPOLAR DISORDER
     Route: 048
     Dates: start: 20011001
  3. RISPERDAL [Concomitant]
     Dates: start: 20050101, end: 20050101
  4. ABILIFY [Concomitant]
     Dates: start: 20050101
  5. GEODON [Concomitant]
     Dates: start: 20050101
  6. HALDOL [Concomitant]
     Dates: start: 20000101, end: 20030101
  7. THORAZINE [Concomitant]
     Dates: start: 20000101, end: 20030101

REACTIONS (3)
  - DRUG INEFFECTIVE [None]
  - NEOPLASM MALIGNANT [None]
  - PANCREATITIS CHRONIC [None]
